FAERS Safety Report 23424441 (Version 2)
Quarter: 2024Q1

REPORT INFORMATION
  Report Type: Spontaneous
  Country: PT (occurrence: PT)
  Receive Date: 20240120
  Receipt Date: 20240307
  Transmission Date: 20240410
  Serious: Yes (Death, Hospitalization)
  Sender: FDA-Public Use
  Company Number: PT-TEVA-VS-3136445

PATIENT
  Age: 6 Decade
  Sex: Male

DRUGS (2)
  1. BUPROPION [Suspect]
     Active Substance: BUPROPION
     Indication: Depression
     Dosage: NASAL INSUFFLATION OF CRASHED TABLETS
     Route: 045
  2. BUPROPION [Suspect]
     Active Substance: BUPROPION
     Indication: Depression
     Route: 065

REACTIONS (8)
  - Psychomotor hyperactivity [Unknown]
  - Dyspnoea [Unknown]
  - Drug abuse [Fatal]
  - Acute myocardial infarction [Unknown]
  - Drug dependence [Unknown]
  - Cardio-respiratory arrest [Fatal]
  - Intentional overdose [Fatal]
  - Sinus tachycardia [Unknown]
